FAERS Safety Report 12542092 (Version 2)
Quarter: 2016Q3

REPORT INFORMATION
  Report Type: Spontaneous
  Country: FR (occurrence: FR)
  Receive Date: 20160708
  Receipt Date: 20160826
  Transmission Date: 20161109
  Serious: No
  Sender: FDA-Public Use
  Company Number: PHHY2016FR093761

PATIENT
  Sex: Female

DRUGS (1)
  1. GLIVEC [Suspect]
     Active Substance: IMATINIB MESYLATE
     Indication: EXPOSURE VIA FATHER
     Dosage: FETAL DRUG EXPOSURE VIA FATHER
     Route: 050

REACTIONS (2)
  - Premature delivery [Unknown]
  - Exposure via partner [Unknown]

NARRATIVE: CASE EVENT DATE: 2015
